FAERS Safety Report 6644569-5 (Version None)
Quarter: 2010Q1

REPORT INFORMATION
  Report Type: 
  Country: None (occurrence: None)
  Receive Date: 20100322
  Receipt Date: 20100303
  Transmission Date: 20100710
  Serious: Yes (Death)
  Sender: FDA-Public Use
  Company Number: FR-CEPHALON-2010001611

PATIENT
  Sex: Female

DRUGS (3)
  1. TREANDA [Suspect]
     Indication: CHRONIC LYMPHOCYTIC LEUKAEMIA
     Dates: start: 20081027, end: 20081123
  2. TREANDA [Suspect]
     Dates: start: 20081124
  3. MABTHERA [Suspect]
     Dates: start: 20080101

REACTIONS (2)
  - DEATH [None]
  - PANCYTOPENIA [None]
